FAERS Safety Report 25477610 (Version 2)
Quarter: 2025Q3

REPORT INFORMATION
  Report Type: Spontaneous
  Country: US (occurrence: US)
  Receive Date: 20250625
  Receipt Date: 20250710
  Transmission Date: 20251021
  Serious: No
  Sender: ROCHE
  Company Number: US-ROCHE-10000322085

PATIENT
  Age: 10 Year
  Sex: Male
  Weight: 62.4 kg

DRUGS (6)
  1. HEMLIBRA [Suspect]
     Active Substance: EMICIZUMAB-KXWH
     Indication: Factor VIII deficiency
     Dosage: STRENGTH: 60MG/0.4ML AND 150MG/ML
     Route: 058
     Dates: start: 201410
  2. HEMLIBRA [Suspect]
     Active Substance: EMICIZUMAB-KXWH
     Indication: Factor VIII deficiency
  3. XYNTHA [Concomitant]
     Active Substance: MOROCTOCOG ALFA
  4. CELEBREX [Concomitant]
     Active Substance: CELECOXIB
     Route: 048
  5. diclofenac (VOLTAREN) [Concomitant]
     Route: 061
  6. LIDOCAINE [Concomitant]
     Active Substance: LIDOCAINE

REACTIONS (9)
  - Haemorrhage [Recovered/Resolved]
  - Joint injury [Unknown]
  - Arthralgia [Unknown]
  - Hypokinesia [Unknown]
  - Haemorrhage [Unknown]
  - Coagulation factor VIII level decreased [Unknown]
  - Activated partial thromboplastin time shortened [Unknown]
  - Platelet count increased [Unknown]
  - Granulocyte count increased [Unknown]

NARRATIVE: CASE EVENT DATE: 20181231
